FAERS Safety Report 11370489 (Version 3)
Quarter: 2017Q4

REPORT INFORMATION
  Report Type: Spontaneous
  Country: US (occurrence: US)
  Receive Date: 20150812
  Receipt Date: 20171011
  Transmission Date: 20180320
  Serious: Yes (Hospitalization, Other)
  Sender: FDA-Public Use
  Company Number: US-DSJP-DSU-2015-124872

PATIENT

DRUGS (5)
  1. SPIRONOLACTONE. [Concomitant]
     Active Substance: SPIRONOLACTONE
     Indication: PRODUCT USED FOR UNKNOWN INDICATION
     Dosage: 25 MG, UNK
  2. HYDROCHLOROTHIAZIDE. [Concomitant]
     Active Substance: HYDROCHLOROTHIAZIDE
     Indication: PRODUCT USED FOR UNKNOWN INDICATION
     Dosage: 25 MG, UNK
  3. ASPIRINE [Concomitant]
     Active Substance: ASPIRIN
     Dosage: 81 MG, QD
  4. BENICAR HCT [Suspect]
     Active Substance: HYDROCHLOROTHIAZIDE\OLMESARTAN MEDOXOMIL
     Indication: HYPERTENSION
     Dosage: 40/25 MG, QD
  5. BENICAR [Suspect]
     Active Substance: OLMESARTAN MEDOXOMIL
     Indication: HYPERTENSION
     Dosage: 40 MG, UNK
     Dates: start: 20060911, end: 20140426

REACTIONS (7)
  - Renal failure [Recovered/Resolved]
  - Emotional distress [Not Recovered/Not Resolved]
  - Hypotension [Recovered/Resolved]
  - Dyspepsia [Unknown]
  - Diverticulitis [Recovered/Resolved]
  - Hypocalcaemia [Recovered/Resolved]
  - Malabsorption [Unknown]

NARRATIVE: CASE EVENT DATE: 20071212
